FAERS Safety Report 7586750-7 (Version None)
Quarter: 2011Q3

REPORT INFORMATION
  Report Type: 
  Country: None (occurrence: None)
  Receive Date: 20110701
  Receipt Date: 20110627
  Transmission Date: 20111222
  Serious: Yes (Disabling)
  Sender: FDA-Public Use
  Company Number: US-MERCK-1106USA03759

PATIENT
  Age: 60 Year
  Sex: Male

DRUGS (4)
  1. IRON (UNSPECIFIED) [Concomitant]
     Route: 048
  2. ZOCOR [Suspect]
     Indication: BLOOD CHOLESTEROL ABNORMAL
     Route: 048
     Dates: start: 20080101, end: 20110626
  3. AMLODIPINE [Concomitant]
     Route: 065
  4. WARFARIN [Concomitant]
     Route: 065

REACTIONS (5)
  - FALL [None]
  - DYSKINESIA [None]
  - OEDEMA PERIPHERAL [None]
  - JOINT SWELLING [None]
  - MUSCLE SPASMS [None]
